FAERS Safety Report 21195250 (Version 1)
Quarter: 2022Q3

REPORT INFORMATION
  Report Type: Spontaneous
  Country: US (occurrence: None)
  Receive Date: 20220809
  Receipt Date: 20220809
  Transmission Date: 20221027
  Serious: No
  Sender: FDA-Public Use
  Company Number: None

PATIENT
  Age: 52 Year
  Sex: Male
  Weight: 93.26 kg

DRUGS (14)
  1. BRAFTOVI [Suspect]
     Active Substance: ENCORAFENIB
     Dosage: 300MG DAILY ORAL?
     Route: 048
     Dates: start: 20220728
  2. ANUSOL-HC [Concomitant]
  3. BENTYL [Concomitant]
  4. ERBITUX [Concomitant]
  5. LEVSIN [Concomitant]
     Active Substance: HYOSCYAMINE SULFATE
  6. LOPERAMIDE [Concomitant]
     Active Substance: LOPERAMIDE
  7. DIPHENHYDRAMINE HYDROCHLORIDE\LIDOCAINE HYDROCHLORIDE\NYSTATIN [Concomitant]
     Active Substance: DIPHENHYDRAMINE HYDROCHLORIDE\LIDOCAINE HYDROCHLORIDE\NYSTATIN
  8. METFORMIN [Concomitant]
     Active Substance: METFORMIN HYDROCHLORIDE
  9. NICOTINE [Concomitant]
     Active Substance: NICOTINE
  10. NORCO [Concomitant]
     Active Substance: ACETAMINOPHEN\HYDROCODONE BITARTRATE
  11. OMEPRAZOLE [Concomitant]
  12. POLYETHYLENE GLYCOL [Concomitant]
  13. PROCHLORPERAZINE [Concomitant]
  14. ZOFRAN ODT [Concomitant]
     Active Substance: ONDANSETRON HYDROCHLORIDE

REACTIONS (1)
  - Disease progression [None]
